FAERS Safety Report 5022317-2 (Version None)
Quarter: 2006Q2

REPORT INFORMATION
  Report Type: 
  Country: None (occurrence: None)
  Receive Date: 20060501
  Receipt Date: 20060403
  Transmission Date: 20061013
  Serious: Yes (Other)
  Sender: FDA-Public Use
  Company Number: 26368

PATIENT
  Age: 25 Year
  Sex: Female
  Weight: 145 kg

DRUGS (3)
  1. PROPOFOL [Suspect]
     Indication: SEDATION
     Dosage: IV
     Route: 042
     Dates: start: 20060403
  2. FENTANYL INFUSION [Concomitant]
  3. CEFEPIME INPB (NOT INFUSED IN SAME SITE) [Concomitant]

REACTIONS (3)
  - BLISTER [None]
  - EXTRAVASATION [None]
  - NECROSIS [None]
